FAERS Safety Report 6808028-9 (Version None)
Quarter: 2010Q2

REPORT INFORMATION
  Report Type: 
  Country: None (occurrence: None)
  Receive Date: 20100629
  Receipt Date: 20090220
  Transmission Date: 20101027
  Serious: No
  Sender: FDA-Public Use
  Company Number: US-PFIZER INC-2009173846

PATIENT
  Sex: Male
  Weight: 84.8 kg

DRUGS (2)
  1. ZYVOX [Suspect]
     Indication: INFECTION PROPHYLAXIS
     Dosage: 600 MG, 2X/DAY
     Route: 048
     Dates: start: 20081220, end: 20090101
  2. CARDIOVASCULAR SYSTEM DRUGS [Concomitant]
     Dosage: UNK

REACTIONS (1)
  - DYSGEUSIA [None]
